FAERS Safety Report 5232532-0 (Version None)
Quarter: 2007Q1

REPORT INFORMATION
  Report Type: 
  Country: None (occurrence: None)
  Receive Date: 20070207
  Receipt Date: 20070205
  Transmission Date: 20070707
  Serious: Yes (Other)
  Sender: FDA-Public Use
  Company Number: US-GLAXOSMITHKLINE-A0638446A

PATIENT
  Age: 39 Year
  Sex: Female

DRUGS (6)
  1. TRIZIVIR [Suspect]
     Dosage: 1500MG PER DAY
     Route: 048
     Dates: start: 20060523, end: 20060608
  2. ALDOMET [Concomitant]
     Dates: end: 20060516
  3. GLUCOPHAGE [Concomitant]
     Dates: end: 20060509
  4. PROCARDIA [Concomitant]
     Dates: start: 20060516, end: 20060516
  5. LABETALOL HCL [Concomitant]
     Dates: start: 20060517
  6. GLYBURIDE [Concomitant]
     Dates: start: 20060523

REACTIONS (4)
  - ABORTION SPONTANEOUS [None]
  - DRUG EXPOSURE DURING PREGNANCY [None]
  - HYPERTENSION [None]
  - SUBSTANCE ABUSE [None]
